FAERS Safety Report 8507140-6 (Version None)
Quarter: 2012Q3

REPORT INFORMATION
  Report Type: 
  Country: None (occurrence: None)
  Receive Date: 20120712
  Receipt Date: 20120618
  Transmission Date: 20120928
  Serious: Yes (Other)
  Sender: FDA-Public Use
  Company Number: US-US-EMD SERONO, INC.-7141624

PATIENT
  Sex: Female

DRUGS (3)
  1. VACCINATION (FOR TRAVEL) [Suspect]
     Indication: IMMUNISATION
  2. VITAMIN D [Concomitant]
     Indication: PRODUCT USED FOR UNKNOWN INDICATION
  3. REBIF [Suspect]
     Indication: MULTIPLE SCLEROSIS
     Route: 058
     Dates: start: 20110722, end: 20120409

REACTIONS (4)
  - ABORTION SPONTANEOUS [None]
  - PREGNANCY [None]
  - MATERNAL EXPOSURE TIMING UNSPECIFIED [None]
  - MATERNAL EXPOSURE DURING PREGNANCY [None]
